FAERS Safety Report 7815446-9 (Version None)
Quarter: 2011Q4

REPORT INFORMATION
  Report Type: 
  Country: None (occurrence: None)
  Receive Date: 20111014
  Receipt Date: 20111005
  Transmission Date: 20120403
  Serious: Yes (Other)
  Sender: FDA-Public Use
  Company Number: PHHY2011TR89206

PATIENT
  Age: 45 Year
  Sex: Female

DRUGS (2)
  1. ESTRADIOL [Suspect]
     Dosage: 1 MG, UNK
  2. DROSPIRENONE [Suspect]
     Dosage: 2 MG, UNK

REACTIONS (1)
  - MAMMOGRAM ABNORMAL [None]
